FAERS Safety Report 24702296 (Version 2)
Quarter: 2024Q4

REPORT INFORMATION
  Report Type: Spontaneous
  Country: IT (occurrence: IT)
  Receive Date: 20241205
  Receipt Date: 20241217
  Transmission Date: 20250114
  Serious: Yes (Hospitalization, Other)
  Sender: MYLAN
  Company Number: IT-TOWA-202405009

PATIENT
  Age: 86 Year
  Sex: Female

DRUGS (5)
  1. APIXABAN [Interacting]
     Active Substance: APIXABAN
     Indication: Venous thrombosis
     Dosage: 2.5 MILLIGRAM, BID (0.5 DAY)
     Route: 048
     Dates: start: 2021
  2. DABIGATRAN [Interacting]
     Active Substance: DABIGATRAN
     Indication: Product used for unknown indication
     Dosage: 50 DOSAGE FORM (INTENTIONAL INGESTION OF 50 TABLETS OF DABIGATRAN)
     Route: 048
  3. BISOPROLOL [Concomitant]
     Active Substance: BISOPROLOL
     Indication: Product used for unknown indication
     Dosage: 1.25 MILLIGRAM, BID
     Route: 065
  4. AMILORIDE [Concomitant]
     Active Substance: AMILORIDE
     Indication: Product used for unknown indication
     Dosage: 5 MILLIGRAM, QD
     Route: 065
  5. HYDROCHLOROTHIAZIDE [Concomitant]
     Active Substance: HYDROCHLOROTHIAZIDE
     Indication: Product used for unknown indication
     Dosage: 50 MILLIGRAM, QD
     Route: 065

REACTIONS (10)
  - Coagulopathy [Recovered/Resolved]
  - Fall [Recovered/Resolved]
  - Wound [Recovered/Resolved]
  - Tendon rupture [Recovered/Resolved]
  - Drug interaction [Recovered/Resolved]
  - Intentional self-injury [Recovered/Resolved]
  - Haematoma muscle [Recovered/Resolved]
  - Haematoma [Recovered/Resolved]
  - Intentional product misuse [Unknown]
  - Intentional overdose [Recovered/Resolved]
